FAERS Safety Report 4678729-X (Version None)
Quarter: 2005Q2

REPORT INFORMATION
  Report Type: 
  Country: None (occurrence: None)
  Receive Date: 20050531
  Receipt Date: 20050518
  Transmission Date: 20051028
  Serious: Yes (Hospitalization, Other)
  Sender: FDA-Public Use
  Company Number: HQWYE889123MAY05

PATIENT
  Age: 55 Year
  Sex: Female
  Weight: 67.3 kg

DRUGS (1)
  1. MYLOTARG [Suspect]
     Indication: ACUTE MYELOID LEUKAEMIA
     Dosage: 10.26 MG X 1, INTRAVENOUS
     Route: 042
     Dates: start: 20040630, end: 20040630

REACTIONS (1)
  - NEUTROPENIA [None]
